FAERS Safety Report 4364620-5 (Version None)
Quarter: 2004Q2

REPORT INFORMATION
  Report Type: 
  Country: None (occurrence: None)
  Receive Date: 20040521
  Receipt Date: 20040510
  Transmission Date: 20050107
  Serious: Yes (Disabling)
  Sender: FDA-Public Use
  Company Number: 19850

PATIENT
  Age: 65 Year
  Sex: Female
  Weight: 91.6266 kg

DRUGS (4)
  1. NIASPAN [Suspect]
     Indication: BLOOD CHOLESTEROL INCREASED
     Dosage: 500 MG QHS PO
     Route: 048
     Dates: start: 20040427
  2. VERAPAMIL [Concomitant]
  3. GLUCOTROL [Concomitant]
  4. DIOVAN [Concomitant]

REACTIONS (5)
  - BACK PAIN [None]
  - CONDITION AGGRAVATED [None]
  - DIFFICULTY IN WALKING [None]
  - IMPAIRED DRIVING ABILITY [None]
  - MYALGIA [None]
